FAERS Safety Report 6077980-4 (Version None)
Quarter: 2009Q1

REPORT INFORMATION
  Report Type: 
  Country: None (occurrence: None)
  Receive Date: 20090121
  Receipt Date: 20080320
  Transmission Date: 20090719
  Serious: Yes (Hospitalization, Other)
  Sender: FDA-Public Use
  Company Number: HQWYE893110DEC04

PATIENT
  Sex: Female

DRUGS (1)
  1. PREMPRO [Suspect]
     Dosage: UNSPECIFIED, ORAL
     Route: 048
     Dates: start: 19960101, end: 20010101

REACTIONS (1)
  - BREAST CANCER IN SITU [None]
